FAERS Safety Report 6400312-6 (Version None)
Quarter: 2009Q4

REPORT INFORMATION
  Report Type: 
  Country: None (occurrence: None)
  Receive Date: 20091014
  Receipt Date: 20091007
  Transmission Date: 20100525
  Serious: Yes (Death, Other)
  Sender: FDA-Public Use
  Company Number: BR-BRISTOL-MYERS SQUIBB COMPANY-14815468

PATIENT
  Age: 4 Decade
  Sex: Female

DRUGS (5)
  1. EFAVIRENZ [Suspect]
     Indication: HIV INFECTION
     Dates: start: 20090101, end: 20090101
  2. STAVUDINE [Suspect]
     Dates: start: 20090101, end: 20090101
  3. DARUNAVIR [Suspect]
     Indication: HIV INFECTION
     Dates: start: 20090101, end: 20090101
  4. RALTEGRAVIR [Suspect]
     Indication: HIV INFECTION
     Dosage: TAB. 2009-30SEP09
     Route: 048
     Dates: start: 20090101, end: 20090101
  5. TENOFOVIR [Suspect]
     Dates: start: 20090101, end: 20090101

REACTIONS (3)
  - DEATH [None]
  - RASH [None]
  - STEVENS-JOHNSON SYNDROME [None]
